FAERS Safety Report 23914887 (Version 1)
Quarter: 2024Q2

REPORT INFORMATION
  Report Type: Spontaneous
  Country: US (occurrence: US)
  Receive Date: 20240529
  Receipt Date: 20240529
  Transmission Date: 20240716
  Serious: No
  Sender: FDA-Public Use
  Company Number: US-BRISTOL-MYERS SQUIBB COMPANY-2024-085341

PATIENT
  Age: 75 Year
  Sex: Male
  Weight: 94.9 kg

DRUGS (2)
  1. REVLIMID [Suspect]
     Active Substance: LENALIDOMIDE
     Indication: Plasma cell myeloma
     Dosage: FREQ : ONE CAPSULE DAILY AT BEDTIME FOR 21 DAYS ON, 7 DAYS OFF
     Route: 048
     Dates: start: 20230621
  2. REVLIMID [Suspect]
     Active Substance: LENALIDOMIDE
     Dosage: FREQ : ONE CAPSULE DAILY AT BEDTIME FOR 21 DAYS ON, 7 DAYS OFF
     Route: 048
     Dates: start: 20240522

REACTIONS (1)
  - Full blood count decreased [Unknown]

NARRATIVE: CASE EVENT DATE: 20240517
